FAERS Safety Report 5130935-6 (Version None)
Quarter: 2006Q4

REPORT INFORMATION
  Report Type: 
  Country: None (occurrence: None)
  Receive Date: 20061019
  Receipt Date: 20061010
  Transmission Date: 20070319
  Serious: Yes (Other)
  Sender: FDA-Public Use
  Company Number: GB-ABBOTT-06P-167-0346767-00

PATIENT
  Age: 40 Year
  Sex: Female

DRUGS (1)
  1. DEPAKOTE [Suspect]
     Indication: MIGRAINE
     Route: 048

REACTIONS (1)
  - LIVER DISORDER [None]
